FAERS Safety Report 7638852-4 (Version None)
Quarter: 2011Q3

REPORT INFORMATION
  Report Type: 
  Country: None (occurrence: None)
  Receive Date: 20110726
  Receipt Date: 20110726
  Transmission Date: 20111222
  Serious: No
  Sender: FDA-Public Use
  Company Number: None

PATIENT
  Age: 53 Year
  Sex: Female
  Weight: 63.6 kg

DRUGS (1)
  1. PAROXETINE HCL [Suspect]
     Dosage: 20MG DAILY 047
     Dates: start: 20110701, end: 20110713

REACTIONS (6)
  - FATIGUE [None]
  - DIZZINESS [None]
  - DRUG INEFFECTIVE [None]
  - DISTURBANCE IN ATTENTION [None]
  - PRODUCT SUBSTITUTION ISSUE [None]
  - PRODUCT MEASURED POTENCY ISSUE [None]
